FAERS Safety Report 5673352-2 (Version None)
Quarter: 2008Q1

REPORT INFORMATION
  Report Type: 
  Country: None (occurrence: None)
  Receive Date: 20080317
  Receipt Date: 20080307
  Transmission Date: 20080703
  Serious: Yes (Death)
  Sender: FDA-Public Use
  Company Number: B0510162A

PATIENT
  Age: 12 Month

DRUGS (9)
  1. MELPHALAN (GENERIC) (MELPHALAN) [Suspect]
     Indication: ACUTE LYMPHOCYTIC LEUKAEMIA
  2. STEM CELL TRANSPLANT [Concomitant]
  3. THIOTEPA [Concomitant]
  4. ETOPOSIDE [Concomitant]
  5. CYTARABINE [Concomitant]
  6. CYCLOPHOSPHAMIDE [Concomitant]
  7. TACROLIMUS [Concomitant]
  8. METHOTREXATE [Concomitant]
  9. METHYLPREDNISOLONE [Concomitant]

REACTIONS (5)
  - COMPLICATIONS OF TRANSPLANT SURGERY [None]
  - DRUG TOXICITY [None]
  - MULTI-ORGAN FAILURE [None]
  - SEROSITIS [None]
  - STEM CELL TRANSPLANT [None]
